FAERS Safety Report 10525313 (Version 1)
Quarter: 2014Q4

REPORT INFORMATION
  Report Type: Spontaneous
  Country: US (occurrence: None)
  Receive Date: 20141015
  Receipt Date: 20141015
  Transmission Date: 20150528
  Serious: No
  Sender: FDA-Public Use
  Company Number: None

PATIENT
  Age: 73 Year
  Sex: Male
  Weight: 95.26 kg

DRUGS (2)
  1. ELIQUIS [Suspect]
     Active Substance: APIXABAN
     Indication: PROPHYLAXIS
     Dosage: 2 PILLS PER DAY, TWICE DAILY, TAKEN BY MOUTH
     Route: 048
  2. ELIQUIS [Suspect]
     Active Substance: APIXABAN
     Indication: CEREBROVASCULAR ACCIDENT
     Dosage: 2 PILLS PER DAY, TWICE DAILY, TAKEN BY MOUTH
     Route: 048

REACTIONS (5)
  - Contusion [None]
  - Dysphagia [None]
  - Confusional state [None]
  - Depressed level of consciousness [None]
  - Fatigue [None]

NARRATIVE: CASE EVENT DATE: 20140924
